FAERS Safety Report 5925594-6 (Version None)
Quarter: 2008Q4

REPORT INFORMATION
  Report Type: 
  Country: None (occurrence: None)
  Receive Date: 20081021
  Receipt Date: 20081015
  Transmission Date: 20090506
  Serious: Yes (Death, Hospitalization)
  Sender: FDA-Public Use
  Company Number: A0752019A

PATIENT
  Age: 60 Year
  Sex: Female

DRUGS (2)
  1. COREG CR [Suspect]
     Indication: DRUG USE FOR UNKNOWN INDICATION
     Route: 065
     Dates: end: 20080906
  2. CONCURRENT MEDICATIONS [Concomitant]

REACTIONS (2)
  - CARDIAC OPERATION [None]
  - DEATH [None]
